FAERS Safety Report 25254877 (Version 2)
Quarter: 2025Q3

REPORT INFORMATION
  Report Type: Report from Study
  Country: US (occurrence: US)
  Receive Date: 20250430
  Receipt Date: 20250926
  Transmission Date: 20251020
  Serious: No
  Sender: SUNOVION
  Company Number: US-SMPA-2025SPA004175AA

PATIENT
  Age: 85 Year
  Sex: Male

DRUGS (19)
  1. ORGOVYX [Suspect]
     Active Substance: RELUGOLIX
     Indication: Prostate cancer
     Route: 048
  2. ORGOVYX [Suspect]
     Active Substance: RELUGOLIX
     Dosage: 120 MG, QD
     Route: 048
  3. ALEVE [Concomitant]
     Active Substance: NAPROXEN SODIUM
  4. ALIGN [Concomitant]
     Active Substance: BIFIDOBACTERIUM LONGUM SUBSP. INFANTIS
  5. ASPIRIN [Concomitant]
     Active Substance: ASPIRIN
  6. BISOPROLOL [Concomitant]
     Active Substance: BISOPROLOL
  7. CALCIUM [Concomitant]
     Active Substance: CALCIUM
  8. CLARITIN [Concomitant]
     Active Substance: LORATADINE
  9. DULOXETINE [Concomitant]
     Active Substance: DULOXETINE
  10. EZETIMIBE [Concomitant]
     Active Substance: EZETIMIBE
  11. PREDNISONE [Concomitant]
     Active Substance: PREDNISONE
  12. RECLAST [Concomitant]
     Active Substance: ZOLEDRONIC ACID
  13. TYLENOL [Concomitant]
     Active Substance: ACETAMINOPHEN
  14. VOLTAREN [Concomitant]
     Active Substance: DICLOFENAC SODIUM
  15. ZENPEP [Concomitant]
     Active Substance: PANCRELIPASE AMYLASE\PANCRELIPASE LIPASE\PANCRELIPASE PROTEASE
  16. GLUCOSAMINE [Concomitant]
     Active Substance: GLUCOSAMINE
  17. NITROGLYCERIN [Concomitant]
     Active Substance: NITROGLYCERIN
  18. PREVACID [Concomitant]
     Active Substance: LANSOPRAZOLE
  19. TEMAZEPAM [Concomitant]
     Active Substance: TEMAZEPAM

REACTIONS (2)
  - Sinusitis [Unknown]
  - Sleep disorder [Unknown]
